FAERS Safety Report 7739465-6 (Version None)
Quarter: 2011Q3

REPORT INFORMATION
  Report Type: 
  Country: None (occurrence: None)
  Receive Date: 20110909
  Receipt Date: 20110831
  Transmission Date: 20111222
  Serious: Yes (Other)
  Sender: FDA-Public Use
  Company Number: JP-JNJFOC-20110902771

PATIENT
  Age: 30 Year
  Sex: Female

DRUGS (15)
  1. GABAPENTIN [Suspect]
     Indication: FIBROMYALGIA
     Dosage: 300 MG ONCE A DAY
     Route: 048
  2. NEUROTROPIN [Concomitant]
     Route: 065
  3. LYRICA [Suspect]
     Indication: FIBROMYALGIA
     Dosage: 225 MG ONCE A DAY
     Route: 048
  4. LYRICA [Suspect]
     Route: 048
  5. CELECOXIB [Concomitant]
     Route: 048
  6. CLONAZEPAM [Concomitant]
     Indication: FIBROMYALGIA
     Dosage: ONCE A DAY
     Route: 048
  7. MEILAX [Concomitant]
     Indication: FIBROMYALGIA
     Dosage: ONCE A DAY
     Route: 048
  8. ACONINSUN [Concomitant]
     Route: 048
  9. GABAPENTIN [Suspect]
     Route: 048
  10. DEPAKENE [Concomitant]
     Indication: FIBROMYALGIA
     Dosage: ONCE A DAY
     Route: 048
  11. CYMBALTA [Concomitant]
     Route: 048
  12. ATARAX [Concomitant]
     Route: 065
  13. MYONAL [Concomitant]
     Route: 048
  14. AMITRIPTYLINE HCL [Concomitant]
     Indication: FIBROMYALGIA
     Dosage: ONCE A DAY
     Route: 048
  15. TRAMADOL HYDROCHLORIDE/ACETAMINOPHEN [Suspect]
     Indication: FIBROMYALGIA
     Dosage: 1 OR 2 TABLETS UPTO 4 TIMES PER DAY (4-8 TABLETS DAILY)
     Route: 048
     Dates: start: 20110731, end: 20110823

REACTIONS (4)
  - DIZZINESS [None]
  - NAUSEA [None]
  - PARALYSIS [None]
  - HEADACHE [None]
